FAERS Safety Report 4781114-3 (Version None)
Quarter: 2005Q3

REPORT INFORMATION
  Report Type: 
  Country: None (occurrence: None)
  Receive Date: 20050928
  Receipt Date: 20050920
  Transmission Date: 20060218
  Serious: Yes (Other)
  Sender: FDA-Public Use
  Company Number: US-JNJFOC-20050800482

PATIENT
  Sex: Female
  Weight: 49.9 kg

DRUGS (1)
  1. ORTHO TRI-CYCLEN LO [Suspect]
     Indication: PELVIC PAIN
     Route: 048
     Dates: start: 20050501, end: 20050725

REACTIONS (1)
  - HENOCH-SCHONLEIN PURPURA [None]
